FAERS Safety Report 5401136-9 (Version None)
Quarter: 2007Q3

REPORT INFORMATION
  Report Type: 
  Country: None (occurrence: None)
  Receive Date: 20070731
  Receipt Date: 20070723
  Transmission Date: 20080115
  Serious: Yes (Other)
  Sender: FDA-Public Use
  Company Number: PHBS2007DE12385

PATIENT
  Age: 60 Year
  Sex: Male

DRUGS (2)
  1. ZOMETA [Suspect]
     Indication: BONE PAIN
  2. AREDIA [Suspect]
     Indication: BONE PAIN
     Route: 042

REACTIONS (17)
  - ACTINOMYCOSIS [None]
  - BLOOD IMMUNOGLOBULIN M INCREASED [None]
  - BONE DEBRIDEMENT [None]
  - BONE DISORDER [None]
  - BONE PAIN [None]
  - FACIAL PAIN [None]
  - FIBROSIS [None]
  - IMPAIRED HEALING [None]
  - NEUROLYSIS [None]
  - OSTEOMA [None]
  - OSTEOMYELITIS [None]
  - OSTEONECROSIS [None]
  - OSTEOSCLEROSIS [None]
  - PAIN IN JAW [None]
  - SWELLING FACE [None]
  - THERAPEUTIC PROCEDURE [None]
  - TOOTH EXTRACTION [None]
